FAERS Safety Report 9428014 (Version 1)
Quarter: 2013Q3

REPORT INFORMATION
  Report Type: Report from Study
  Country: US (occurrence: US)
  Receive Date: 20130730
  Receipt Date: 20130730
  Transmission Date: 20140515
  Serious: No
  Sender: FDA-Public Use
  Company Number: US-ABBOTT-12P-163-0971382-00

PATIENT
  Sex: Male
  Weight: 108.96 kg

DRUGS (6)
  1. NIASPAN (COATED) 500MG [Suspect]
     Indication: PRODUCT USED FOR UNKNOWN INDICATION
     Dosage: TWO 500MG TABLETS AM AND TWO 500 MG PM
     Dates: start: 2003
  2. ASA [Concomitant]
     Indication: PRODUCT USED FOR UNKNOWN INDICATION
     Dosage: 30 MINUTES BEFORE THE EVENING DOSE OF NIASPAN
  3. LISINOPRIL [Concomitant]
     Indication: PRODUCT USED FOR UNKNOWN INDICATION
  4. METAPROLOL [Concomitant]
     Indication: PRODUCT USED FOR UNKNOWN INDICATION
  5. CLOPEDRIGAL [Concomitant]
     Indication: PRODUCT USED FOR UNKNOWN INDICATION
  6. FENOFIBRATE [Concomitant]
     Indication: PRODUCT USED FOR UNKNOWN INDICATION

REACTIONS (3)
  - Pruritus [Not Recovered/Not Resolved]
  - Feeling hot [Not Recovered/Not Resolved]
  - Flushing [Not Recovered/Not Resolved]
